FAERS Safety Report 5849013-3 (Version None)
Quarter: 2008Q3

REPORT INFORMATION
  Report Type: 
  Country: None (occurrence: None)
  Receive Date: 20080815
  Receipt Date: 20080801
  Transmission Date: 20090109
  Serious: Yes (Other)
  Sender: FDA-Public Use
  Company Number: 2008PV000048

PATIENT
  Age: 42 Year
  Sex: Male

DRUGS (3)
  1. DEPOCYT [Suspect]
     Indication: METASTASES TO MENINGES
     Dosage: 50 MG;QM;INTH
     Route: 037
     Dates: start: 20071001, end: 20071201
  2. METHOTREXATE [Concomitant]
  3. IFOSFAMIDE [Concomitant]

REACTIONS (6)
  - CENTRAL NERVOUS SYSTEM LYMPHOMA [None]
  - GENERAL PHYSICAL HEALTH DETERIORATION [None]
  - MALIGNANT NEOPLASM PROGRESSION [None]
  - NEURALGIA [None]
  - SENSORY DISTURBANCE [None]
  - T-CELL LYMPHOMA RECURRENT [None]
